FAERS Safety Report 24687346 (Version 1)
Quarter: 2024Q4

REPORT INFORMATION
  Report Type: Spontaneous
  Country: GB (occurrence: GB)
  Receive Date: 20241202
  Receipt Date: 20241202
  Transmission Date: 20250115
  Serious: Yes (Other)
  Sender: ELI LILLY AND COMPANY
  Company Number: GB-MHRA-TPP477266C24729821YC1732124645819

PATIENT
  Age: 60 Year
  Sex: Male
  Weight: 113 kg

DRUGS (20)
  1. MOUNJARO [Suspect]
     Active Substance: TIRZEPATIDE
     Indication: Product used for unknown indication
     Dosage: UNK, WEEKLY (1/W)
     Route: 065
     Dates: start: 20241004, end: 20241101
  2. MOUNJARO [Suspect]
     Active Substance: TIRZEPATIDE
     Dosage: 10 MG, WEEKLY (1/W)
     Route: 065
     Dates: start: 20241105
  3. CYCLIZINE [Concomitant]
     Active Substance: CYCLIZINE
     Indication: Illness
     Dosage: 1 DOSAGE FORM, EVERY 8 HRS
     Dates: start: 20240822, end: 20240901
  4. LANSOPRAZOLE [Concomitant]
     Active Substance: LANSOPRAZOLE
     Indication: Product used for unknown indication
     Dosage: 1 DOSAGE FORM, DAILY
     Dates: start: 20231214
  5. LOPERAMIDE [Concomitant]
     Active Substance: LOPERAMIDE
     Indication: Product used for unknown indication
     Dosage: UNK, UNKNOWN
     Dates: start: 20230707
  6. LYMECYCLINE [Concomitant]
     Active Substance: LYMECYCLINE
     Indication: Product used for unknown indication
     Dosage: 1 DOSAGE FORM, DAILY
     Dates: start: 20230707
  7. PEPTAC D [Concomitant]
     Indication: Product used for unknown indication
     Dosage: 10 ML, EVERY 6 HRS
     Dates: start: 20230707
  8. AMITRIPTYLINE HYDROCHLORIDE [Concomitant]
     Active Substance: AMITRIPTYLINE HYDROCHLORIDE
     Indication: Ill-defined disorder
     Dosage: 1 DOSAGE FORM, QID
     Dates: start: 20231214
  9. ISOSORBIDE MONONITRATE [Concomitant]
     Active Substance: ISOSORBIDE MONONITRATE
     Indication: Ill-defined disorder
     Dosage: UNK, DAILY
     Dates: start: 20231214
  10. IVABRADINE [Concomitant]
     Active Substance: IVABRADINE
     Indication: Ill-defined disorder
     Dosage: UNK, BID
     Dates: start: 20231214
  11. LOSARTAN [Concomitant]
     Active Substance: LOSARTAN
     Indication: Ill-defined disorder
     Dosage: UNK, BID
     Dates: start: 20231214, end: 20240906
  12. MONTELUKAST [Concomitant]
     Active Substance: MONTELUKAST
     Indication: Ill-defined disorder
     Dosage: UNK, EACH EVENING
     Dates: start: 20231214
  13. DILTIAZEM HYDROCHLORIDE [Concomitant]
     Active Substance: DILTIAZEM HYDROCHLORIDE
     Indication: Ill-defined disorder
     Dosage: UNK, DAILY
     Dates: start: 20231214
  14. BECLOMETHASONE DIPROPIONATE\FORMOTEROL FUMARATE\GLYCOPYRROLATE [Concomitant]
     Active Substance: BECLOMETHASONE DIPROPIONATE\FORMOTEROL FUMARATE\GLYCOPYRROLATE
     Indication: Ill-defined disorder
     Dosage: UNK, BID
     Dates: start: 20231214
  15. DOXAZOSIN [Concomitant]
     Active Substance: DOXAZOSIN\DOXAZOSIN MESYLATE
     Indication: Ill-defined disorder
     Dosage: UNK, BID
     Dates: start: 20240520
  16. EMPAGLIFLOZIN [Concomitant]
     Active Substance: EMPAGLIFLOZIN
     Indication: Ill-defined disorder
     Dosage: UNK, DAILY
     Dates: start: 20240520
  17. ROSUVASTATIN [Concomitant]
     Active Substance: ROSUVASTATIN
     Indication: Ill-defined disorder
     Dosage: UNK, DAILY
     Dates: start: 20240528
  18. CALCI D [Concomitant]
     Indication: Ill-defined disorder
     Dosage: UNK UNK, DAILY
     Dates: start: 20240805
  19. FAMOTIDINE [Concomitant]
     Active Substance: FAMOTIDINE
     Indication: Ill-defined disorder
     Dosage: UNK, BID
     Dates: start: 20240822
  20. CANDESARTAN [Concomitant]
     Active Substance: CANDESARTAN
     Indication: Ill-defined disorder
     Dosage: UNK, BID
     Dates: start: 20240906

REACTIONS (3)
  - Pain [Recovered/Resolved]
  - Bowel movement irregularity [Recovered/Resolved]
  - Abdominal pain [Recovered/Resolved]
